FAERS Safety Report 10254368 (Version 1)
Quarter: 2014Q2

REPORT INFORMATION
  Report Type: Spontaneous
  Country: RU (occurrence: RU)
  Receive Date: 20140624
  Receipt Date: 20140624
  Transmission Date: 20141212
  Serious: Yes (Other)
  Sender: FDA-Public Use
  Company Number: RU-UCBSA-2014002503

PATIENT
  Age: 5 Year
  Sex: Male

DRUGS (1)
  1. KEPPRA [Suspect]
     Dosage: 40 MG/KG, ONCE DAILY (QD)
     Route: 048

REACTIONS (3)
  - Psychomotor hyperactivity [Unknown]
  - Convulsion [Unknown]
  - Sleep disorder [Unknown]
